FAERS Safety Report 8464355-3 (Version None)
Quarter: 2012Q2

REPORT INFORMATION
  Report Type: 
  Country: None (occurrence: None)
  Receive Date: 20120626
  Receipt Date: 20120619
  Transmission Date: 20120825
  Serious: Yes (Other)
  Sender: FDA-Public Use
  Company Number: ES-AMGEN-ESPSP2012038099

PATIENT
  Age: 71 Year
  Sex: Female

DRUGS (3)
  1. LEVOTHROID [Concomitant]
     Indication: HYPOTHYROIDISM
  2. IXIA [Concomitant]
     Indication: HYPERTENSION
  3. PROLIA [Suspect]
     Indication: PRODUCT USED FOR UNKNOWN INDICATION
     Dosage: UNK
     Dates: start: 20120301

REACTIONS (2)
  - EYE DISORDER [None]
  - VISUAL ACUITY REDUCED [None]
